FAERS Safety Report 4519482-X (Version None)
Quarter: 2004Q4

REPORT INFORMATION
  Report Type: 
  Country: None (occurrence: None)
  Receive Date: 20041101
  Receipt Date: 20040430
  Transmission Date: 20050328
  Serious: Yes (Other)
  Sender: FDA-Public Use
  Company Number: HQWYE675903MAY04

PATIENT
  Sex: Female

DRUGS (2)
  1. PREMARIN [Suspect]
     Indication: OESTROGEN REPLACEMENT THERAPY
     Dosage: 0.9 TO 1.25 MG DAILY, ORAL
     Route: 048
     Dates: start: 20000101, end: 20030701
  2. ADDEREALL (AMFETAMINE ASPARATATE/AMFETAMINE SULFATE/DEXAMFTAMINE SACCH [Concomitant]

REACTIONS (3)
  - BLISTER [None]
  - IMPAIRED HEALING [None]
  - SKIN INFECTION [None]
